FAERS Safety Report 12430058 (Version 1)
Quarter: 2016Q2

REPORT INFORMATION
  Report Type: Spontaneous
  Country: JP (occurrence: JP)
  Receive Date: 20160602
  Receipt Date: 20160602
  Transmission Date: 20160815
  Serious: Yes (Hospitalization, Other)
  Sender: FDA-Public Use
  Company Number: JP-BRISTOL-MYERS SQUIBB COMPANY-BMS-2016-042572

PATIENT
  Age: 49 Year
  Sex: Male

DRUGS (2)
  1. OPDIVO [Suspect]
     Active Substance: NIVOLUMAB
     Indication: NON-SMALL CELL LUNG CANCER RECURRENT
     Dosage: 180 MG, QD
     Route: 041
     Dates: start: 20160115, end: 20160115
  2. OPDIVO [Suspect]
     Active Substance: NIVOLUMAB
     Dosage: 180 MG, QD
     Route: 041
     Dates: start: 20160314, end: 20160314

REACTIONS (1)
  - Pneumothorax [Recovered/Resolved]

NARRATIVE: CASE EVENT DATE: 20160331
